FAERS Safety Report 18539951 (Version 1)
Quarter: 2020Q4

REPORT INFORMATION
  Report Type: Spontaneous
  Country: US (occurrence: US)
  Receive Date: 20201124
  Receipt Date: 20201124
  Transmission Date: 20210114
  Serious: Yes (Hospitalization)
  Sender: FDA-Public Use
  Company Number: None

PATIENT
  Age: 65 Year
  Sex: Female
  Weight: 78.2 kg

DRUGS (1)
  1. BAMLANIVIMAB INJECTABLE [Suspect]
     Active Substance: BAMLANIVIMAB
     Indication: COVID-19
     Dates: start: 20201119, end: 20201119

REACTIONS (5)
  - Back pain [None]
  - Acute coronary syndrome [None]
  - Stress cardiomyopathy [None]
  - Vomiting [None]
  - Hypertension [None]

NARRATIVE: CASE EVENT DATE: 20201119
